FAERS Safety Report 6431557-7 (Version None)
Quarter: 2009Q4

REPORT INFORMATION
  Report Type: 
  Country: None (occurrence: None)
  Receive Date: 20091103
  Receipt Date: 20091002
  Transmission Date: 20100525
  Serious: Yes (Other)
  Sender: FDA-Public Use
  Company Number: 1-20338940

PATIENT
  Age: 53 Year
  Sex: Female

DRUGS (10)
  1. FENTANYL-100 [Suspect]
     Indication: PAIN
     Dosage: 100 MCG, SUBCUTANEOUS
     Route: 058
     Dates: start: 20090908, end: 20090908
  2. SIMVASTATIN [Concomitant]
  3. ACETYLSALICYLIC ACID [Concomitant]
  4. LANSOPRAZOLE [Concomitant]
  5. TEMAZEPAM [Concomitant]
  6. TRAMADOL HCL [Concomitant]
  7. PARACETAMOL [Concomitant]
  8. DICLOFENAC [Concomitant]
  9. DIAZEPAM [Concomitant]
  10. MORPHINE [Concomitant]

REACTIONS (3)
  - GLOSSODYNIA [None]
  - OEDEMA MOUTH [None]
  - SWOLLEN TONGUE [None]
